FAERS Safety Report 23861509 (Version 2)
Quarter: 2024Q2

REPORT INFORMATION
  Report Type: Spontaneous
  Country: US (occurrence: US)
  Receive Date: 20240516
  Receipt Date: 20240529
  Transmission Date: 20240715
  Serious: No
  Sender: FDA-Public Use
  Company Number: US-IPSEN Group, Research and Development-2024-08110

PATIENT
  Age: 77 Year
  Sex: Female

DRUGS (4)
  1. DYSPORT [Suspect]
     Active Substance: ABOBOTULINUMTOXINA
     Indication: Muscle spasticity
     Route: 030
     Dates: start: 20230311, end: 20230311
  2. DYSPORT [Suspect]
     Active Substance: ABOBOTULINUMTOXINA
     Route: 030
     Dates: start: 20240216, end: 20240216
  3. DYSPORT [Suspect]
     Active Substance: ABOBOTULINUMTOXINA
     Route: 030
     Dates: start: 20240419, end: 20240419
  4. DYSPORT [Suspect]
     Active Substance: ABOBOTULINUMTOXINA
     Route: 030

REACTIONS (5)
  - Dyspnoea [Recovering/Resolving]
  - Dysphagia [Unknown]
  - Asthenia [Unknown]
  - Weight decreased [Unknown]
  - Off label use [Unknown]

NARRATIVE: CASE EVENT DATE: 20240421
